FAERS Safety Report 11980754 (Version 2)
Quarter: 2016Q1

REPORT INFORMATION
  Report Type: Spontaneous
  Country: US (occurrence: US)
  Receive Date: 20160129
  Receipt Date: 20160130
  Transmission Date: 20160526
  Serious: No
  Sender: FDA-Public Use
  Company Number: US-FRESENIUS KABI-FK201500987

PATIENT
  Sex: Female
  Weight: 6.81 kg

DRUGS (2)
  1. OCTREOTIDE ACETATE INJECTION [Suspect]
     Active Substance: OCTREOTIDE ACETATE
     Indication: BLOOD INSULIN INCREASED
     Route: 058
     Dates: start: 201411
  2. OCTREOTIDE ACETATE INJECTION [Suspect]
     Active Substance: OCTREOTIDE ACETATE
     Route: 058
     Dates: start: 201411

REACTIONS (2)
  - Drug ineffective [Unknown]
  - Product use issue [Unknown]
